FAERS Safety Report 23993550 (Version 1)
Quarter: 2024Q2

REPORT INFORMATION
  Report Type: Spontaneous
  Country: CN (occurrence: CN)
  Receive Date: 20240620
  Receipt Date: 20240620
  Transmission Date: 20240715
  Serious: Yes (Other)
  Sender: FDA-Public Use
  Company Number: CN-STRIDES ARCOLAB LIMITED-2024SP006971

PATIENT
  Sex: Male

DRUGS (15)
  1. CYCLOSPORINE [Suspect]
     Active Substance: CYCLOSPORINE
     Indication: Prophylaxis against graft versus host disease
     Dosage: UNK
     Route: 065
  2. MYCOPHENOLATE MOFETIL [Suspect]
     Active Substance: MYCOPHENOLATE MOFETIL
     Indication: Prophylaxis against graft versus host disease
     Dosage: UNK
     Route: 065
  3. METHOTREXATE [Suspect]
     Active Substance: METHOTREXATE
     Indication: Prophylaxis against graft versus host disease
     Dosage: UNK
     Route: 065
  4. ETOPOSIDE [Concomitant]
     Active Substance: ETOPOSIDE
     Indication: Hepatosplenic T-cell lymphoma
     Dosage: UNK
     Route: 065
  5. ETOPOSIDE [Concomitant]
     Active Substance: ETOPOSIDE
     Dosage: 100 MILLIGRAM, QD (RECEIVED FOR 5 DAYS)
     Route: 065
  6. CYCLOPHOSPHAMIDE [Concomitant]
     Active Substance: CYCLOPHOSPHAMIDE
     Indication: Hepatosplenic T-cell lymphoma
     Dosage: UNK
     Route: 065
  7. CYCLOPHOSPHAMIDE [Concomitant]
     Active Substance: CYCLOPHOSPHAMIDE
     Dosage: 300 MILLIGRAM/SQ. METER, QD
     Route: 065
  8. DOXORUBICIN HYDROCHLORIDE [Concomitant]
     Active Substance: DOXORUBICIN HYDROCHLORIDE
     Indication: Hepatosplenic T-cell lymphoma
     Dosage: UNK
     Route: 065
  9. VINDESINE [Concomitant]
     Active Substance: VINDESINE
     Indication: Hepatosplenic T-cell lymphoma
     Dosage: UNK
     Route: 065
  10. DEXAMETHASONE [Concomitant]
     Active Substance: DEXAMETHASONE
     Indication: Hepatosplenic T-cell lymphoma
     Dosage: UNK
     Route: 065
  11. IFOSFAMIDE [Concomitant]
     Active Substance: IFOSFAMIDE
     Indication: Hepatosplenic T-cell lymphoma
     Dosage: UNK
     Route: 065
  12. CISPLATIN [Concomitant]
     Active Substance: CISPLATIN
     Indication: Hepatosplenic T-cell lymphoma
     Dosage: UNK
     Route: 065
  13. SELINEXOR [Concomitant]
     Active Substance: SELINEXOR
     Indication: Hepatosplenic T-cell lymphoma
     Dosage: UNK
     Route: 065
  14. FLUDARABINE [Concomitant]
     Active Substance: FLUDARABINE PHOSPHATE
     Indication: Hepatosplenic T-cell lymphoma
     Dosage: 30 MILLIGRAM/SQ. METER, QD
     Route: 065
  15. TOCILIZUMAB [Concomitant]
     Active Substance: TOCILIZUMAB
     Indication: Cytokine release syndrome
     Dosage: UNK
     Route: 065

REACTIONS (1)
  - Acute graft versus host disease [Recovered/Resolved]
